FAERS Safety Report 13122736 (Version 3)
Quarter: 2017Q1

REPORT INFORMATION
  Report Type: Report from Study
  Country: KR (occurrence: KR)
  Receive Date: 20170117
  Receipt Date: 20170123
  Transmission Date: 20170428
  Serious: Yes (Hospitalization)
  Sender: FDA-Public Use
  Company Number: KR-SEATTLE GENETICS-2017SGN00052

PATIENT

DRUGS (1)
  1. BRENTUXIMAB VEDOTIN [Suspect]
     Active Substance: BRENTUXIMAB VEDOTIN
     Indication: DIFFUSE LARGE B-CELL LYMPHOMA
     Dosage: 120 MG, Q21D
     Route: 042
     Dates: start: 20161223, end: 20161223

REACTIONS (1)
  - Implant site inflammation [Recovered/Resolved]

NARRATIVE: CASE EVENT DATE: 20170107
